FAERS Safety Report 4949058-1 (Version None)
Quarter: 2006Q1

REPORT INFORMATION
  Report Type: 
  Country: None (occurrence: None)
  Receive Date: 20060321
  Receipt Date: 20060313
  Transmission Date: 20060701
  Serious: Yes (Other)
  Sender: FDA-Public Use
  Company Number: NL-GLAXOSMITHKLINE-B0416386A

PATIENT
  Sex: Male

DRUGS (3)
  1. SALMETEROL XINAFOATE [Suspect]
     Dosage: 1PUFF TWICE PER DAY
  2. SALBUTAMOL SULPHATE [Suspect]
     Dosage: 1PUFF SEE DOSAGE TEXT
  3. FLUTICASONE PROPIONATE [Suspect]
     Dosage: 1PUFF TWICE PER DAY

REACTIONS (5)
  - ASTHMA [None]
  - CHEST DISCOMFORT [None]
  - COUGH [None]
  - DRUG INEFFECTIVE [None]
  - DYSPNOEA [None]
